FAERS Safety Report 9234264 (Version 1)
Quarter: 2013Q2

REPORT INFORMATION
  Report Type: Spontaneous
  Country: FR (occurrence: FR)
  Receive Date: 20130416
  Receipt Date: 20130416
  Transmission Date: 20140414
  Serious: Yes (Hospitalization)
  Sender: FDA-Public Use
  Company Number: PHHY2013FR035610

PATIENT
  Age: 28 Year
  Sex: Female

DRUGS (1)
  1. LEELOO [Suspect]
     Indication: CONTRACEPTION
     Dosage: 1 DF, UNK
     Route: 048
     Dates: start: 201109, end: 20120307

REACTIONS (2)
  - Pulmonary infarction [Recovered/Resolved]
  - Pulmonary embolism [Recovered/Resolved]
